FAERS Safety Report 8173145-0 (Version None)
Quarter: 2012Q1

REPORT INFORMATION
  Report Type: 
  Country: None (occurrence: None)
  Receive Date: 20120229
  Receipt Date: 20110310
  Transmission Date: 20120608
  Serious: No
  Sender: FDA-Public Use
  Company Number: US-GLAXOSMITHKLINE-A0917561A

PATIENT
  Age: 67 Year
  Sex: Female

DRUGS (7)
  1. IBUPROFEN [Concomitant]
  2. THYROID MEDICATION [Concomitant]
  3. IMITREX [Suspect]
     Indication: MIGRAINE
     Dosage: 6MG AS REQUIRED
     Route: 058
     Dates: start: 20010101, end: 20110201
  4. CODEINE [Concomitant]
  5. HORMONES [Concomitant]
  6. SOMA [Concomitant]
  7. LISINOPRIL [Concomitant]

REACTIONS (1)
  - CHEST PAIN [None]
